FAERS Safety Report 16044250 (Version 2)
Quarter: 2019Q2

REPORT INFORMATION
  Report Type: Spontaneous
  Country: RO (occurrence: RO)
  Receive Date: 20190306
  Receipt Date: 20190402
  Transmission Date: 20190711
  Serious: Yes (Death)
  Sender: FDA-Public Use
  Company Number: PHHY2019RO048759

PATIENT
  Age: 68 Year
  Sex: Female

DRUGS (1)
  1. DABRAFENIB [Suspect]
     Active Substance: DABRAFENIB
     Indication: METASTATIC MALIGNANT MELANOMA
     Dosage: 150 MG, BID
     Route: 065

REACTIONS (5)
  - Neutropenia [Fatal]
  - Gamma-glutamyltransferase increased [Fatal]
  - Lymphopenia [Fatal]
  - Red blood cell sedimentation rate increased [Fatal]
  - Iron deficiency anaemia [Fatal]
